FAERS Safety Report 15025527 (Version 2)
Quarter: 2018Q3

REPORT INFORMATION
  Report Type: Spontaneous
  Country: AT (occurrence: AT)
  Receive Date: 20180618
  Receipt Date: 20180719
  Transmission Date: 20181010
  Serious: Yes (Death, Life-Threatening, Hospitalization, Other)
  Sender: FDA-Public Use
  Company Number: AT-ELI_LILLY_AND_COMPANY-AT201806005782

PATIENT
  Age: 73 Year
  Sex: Male

DRUGS (7)
  1. LANOLEPT [Suspect]
     Active Substance: CLOZAPINE
     Dosage: UNK UNK, UNKNOWN
     Route: 048
     Dates: end: 20180601
  2. LANOLEPT [Suspect]
     Active Substance: CLOZAPINE
     Indication: SCHIZOPHRENIA
     Dosage: UNK UNK, DOSE INCREASED GRADUALLY
     Route: 048
     Dates: start: 201805
  3. THROMBO ASS [Suspect]
     Active Substance: ASPIRIN
     Indication: PRODUCT USED FOR UNKNOWN INDICATION
     Dosage: UNK UNK, UNKNOWN
     Route: 065
  4. ZYPREXA [Suspect]
     Active Substance: OLANZAPINE
     Indication: PRODUCT USED FOR UNKNOWN INDICATION
     Dosage: 30 MG, UNKNOWN
     Route: 065
  5. ENALAPRIL [Suspect]
     Active Substance: ENALAPRIL
     Indication: PRODUCT USED FOR UNKNOWN INDICATION
     Dosage: UNK UNK, UNKNOWN
     Route: 065
  6. HALDOL [Suspect]
     Active Substance: HALOPERIDOL
     Indication: PRODUCT USED FOR UNKNOWN INDICATION
     Dosage: UNK UNK, UNKNOWN
     Route: 065
  7. ZYPREXA [Suspect]
     Active Substance: OLANZAPINE
     Dosage: UNK UNK, UNKNOWN
     Route: 065

REACTIONS (4)
  - General physical health deterioration [Not Recovered/Not Resolved]
  - Agranulocytosis [Not Recovered/Not Resolved]
  - Sepsis [Fatal]
  - Septic shock [Unknown]

NARRATIVE: CASE EVENT DATE: 20180601
